FAERS Safety Report 21761042 (Version 1)
Quarter: 2022Q4

REPORT INFORMATION
  Report Type: Spontaneous
  Country: TN (occurrence: TN)
  Receive Date: 20221221
  Receipt Date: 20221221
  Transmission Date: 20230113
  Serious: Yes (Other)
  Sender: FDA-Public Use
  Company Number: TN-MYLANLABS-2022M1144697

PATIENT
  Sex: Female

DRUGS (6)
  1. VENLAFAXINE [Suspect]
     Active Substance: VENLAFAXINE HYDROCHLORIDE
     Indication: Bipolar II disorder
     Dosage: UNK
     Route: 065
  2. VENLAFAXINE [Suspect]
     Active Substance: VENLAFAXINE HYDROCHLORIDE
     Indication: Obsessive-compulsive disorder
  3. TERALITHE [Suspect]
     Active Substance: LITHIUM CARBONATE
     Indication: Bipolar II disorder
     Dosage: UNK
     Route: 065
  4. TERALITHE [Suspect]
     Active Substance: LITHIUM CARBONATE
     Indication: Obsessive-compulsive disorder
  5. OLANZAPINE [Suspect]
     Active Substance: OLANZAPINE
     Indication: Bipolar II disorder
     Dosage: UNK
     Route: 065
  6. OLANZAPINE [Suspect]
     Active Substance: OLANZAPINE
     Indication: Obsessive-compulsive disorder

REACTIONS (1)
  - Drug ineffective [Unknown]
